FAERS Safety Report 4393185-7 (Version None)
Quarter: 2004Q3

REPORT INFORMATION
  Report Type: 
  Country: None (occurrence: None)
  Receive Date: 20040702
  Receipt Date: 20040330
  Transmission Date: 20050211
  Serious: Yes (Death, Other)
  Sender: FDA-Public Use
  Company Number: MAG-2004-0000274

PATIENT
  Age: 75 Year
  Sex: Male

DRUGS (13)
  1. OXYCODONE HCL [Suspect]
     Indication: CANCER PAIN
     Dosage: 30 MG DAILY, ORAL
     Route: 048
     Dates: start: 20031219, end: 20040101
  2. BETAMETHASONE [Concomitant]
  3. FAMOTIDINE [Concomitant]
  4. LOXONIN (LOXOPROFEN SODIUM) [Concomitant]
  5. SELBEX (TEPRENONE) [Concomitant]
  6. ZOLPIDEM TARTRATE [Concomitant]
  7. 8-HOUR BAYER [Concomitant]
  8. DILTIAZEM HYDROCHLORIDE [Concomitant]
  9. ISOSORBIDE MONONITRATE [Concomitant]
  10. NOVAMIN (PROCHLORPERAZINE) [Concomitant]
  11. MAGNESIUM OXIDE [Concomitant]
  12. CARBOPLATIN [Concomitant]
  13. TAXOL [Concomitant]

REACTIONS (4)
  - DECREASED APPETITE [None]
  - DEPRESSED LEVEL OF CONSCIOUSNESS [None]
  - ILEUS PARALYTIC [None]
  - SEPSIS [None]
